FAERS Safety Report 24285143 (Version 1)
Quarter: 2024Q3

REPORT INFORMATION
  Report Type: Spontaneous
  Country: GB (occurrence: GB)
  Receive Date: 20240905
  Receipt Date: 20240905
  Transmission Date: 20241016
  Serious: Yes (Disabling)
  Sender: ALKEM
  Company Number: None

PATIENT
  Age: 44 Year
  Sex: Female
  Weight: 72 kg

DRUGS (2)
  1. PREGABALIN [Suspect]
     Active Substance: PREGABALIN
     Indication: Neuralgia
     Dosage: 50 MILLIGRAM
     Route: 065
  2. PREGABALIN [Suspect]
     Active Substance: PREGABALIN
     Dosage: 75 MILLIGRAM, CAPSULE
     Route: 065
     Dates: start: 20191023

REACTIONS (6)
  - Neuralgia [Not Recovered/Not Resolved]
  - Medication error [Unknown]
  - Vision blurred [Unknown]
  - Headache [Unknown]
  - Hypotension [Unknown]
  - Weight increased [Unknown]

NARRATIVE: CASE EVENT DATE: 20191023
